FAERS Safety Report 18578382 (Version 1)
Quarter: 2020Q4

REPORT INFORMATION
  Report Type: Spontaneous
  Country: US (occurrence: US)
  Receive Date: 20201204
  Receipt Date: 20201204
  Transmission Date: 20210114
  Serious: Yes (Other)
  Sender: FDA-Public Use
  Company Number: US-SUN PHARMACEUTICAL INDUSTRIES LTD-2020R1-269689

PATIENT
  Age: 6 Year
  Sex: Male

DRUGS (1)
  1. PREDNISONE. [Suspect]
     Active Substance: PREDNISONE
     Indication: CSWS SYNDROME
     Dosage: 2 MILLIGRAM/KILOGRAM, DAILY
     Route: 065

REACTIONS (3)
  - Growth disorder [Unknown]
  - Mood swings [Unknown]
  - Weight increased [Unknown]
